FAERS Safety Report 8372185-6 (Version None)
Quarter: 2012Q2

REPORT INFORMATION
  Report Type: 
  Country: None (occurrence: None)
  Receive Date: 20120521
  Receipt Date: 20120509
  Transmission Date: 20120825
  Serious: Yes (Hospitalization)
  Sender: FDA-Public Use
  Company Number: US-BIOGENIDEC-2011BI004903

PATIENT
  Sex: Female

DRUGS (3)
  1. AVONEX [Suspect]
     Indication: MULTIPLE SCLEROSIS
     Route: 030
     Dates: start: 20000202, end: 20040601
  2. AVONEX [Suspect]
     Route: 030
     Dates: start: 20120113
  3. AVONEX [Suspect]
     Route: 030
     Dates: start: 20090820, end: 20110701

REACTIONS (4)
  - DEPRESSION [None]
  - MYOCARDIAL INFARCTION [None]
  - DEHYDRATION [None]
  - CORONARY ARTERY DISEASE [None]
